FAERS Safety Report 8044372 (Version 2)
Quarter: 2013Q1

REPORT INFORMATION
  Report Type: Spontaneous
  Country: NZ (occurrence: NZ)
  Receive Date: 20110719
  Receipt Date: 20130220
  Transmission Date: 20140127
  Serious: Yes (Death, Hospitalization)
  Sender: FDA-Public Use
  Company Number: NZ-ASTRAZENECA-2011SE42277

PATIENT
  Age: 33 Year
  Sex: Male

DRUGS (2)
  1. SEROQUEL [Suspect]
     Indication: SCHIZOPHRENIA, CATATONIC TYPE
     Route: 048
  2. SEROQUEL [Suspect]
     Indication: SCHIZOPHRENIA, CATATONIC TYPE
     Route: 048
     Dates: end: 20101206

REACTIONS (3)
  - Congestive cardiomyopathy [Fatal]
  - Ventricular arrhythmia [Fatal]
  - Cardiac failure [Recovered/Resolved]
